FAERS Safety Report 18913213 (Version 1)
Quarter: 2021Q1

REPORT INFORMATION
  Report Type: Spontaneous
  Country: CA (occurrence: CA)
  Receive Date: 20210219
  Receipt Date: 20210219
  Transmission Date: 20210420
  Serious: Yes (Other)
  Sender: FDA-Public Use
  Company Number: CA-ROCHE-2770771

PATIENT
  Age: 57 Year
  Sex: Female

DRUGS (24)
  1. CALCIUM [Concomitant]
     Active Substance: CALCIUM
  2. INFLIXIMAB [Suspect]
     Active Substance: INFLIXIMAB
     Indication: PRODUCT USED FOR UNKNOWN INDICATION
     Route: 065
  3. FLOVENT [Concomitant]
     Active Substance: FLUTICASONE PROPIONATE
  4. METHOTREXATE. [Concomitant]
     Active Substance: METHOTREXATE
  5. PANTOPRAZOLE [Concomitant]
     Active Substance: PANTOPRAZOLE
  6. XELJANZ [Concomitant]
     Active Substance: TOFACITINIB CITRATE
  7. ADVIL [Concomitant]
     Active Substance: IBUPROFEN
  8. ALPHAGAN P [Concomitant]
     Active Substance: BRIMONIDINE TARTRATE
     Dosage: LIQUID OPHTHALMIC
  9. FOLIC ACID. [Concomitant]
     Active Substance: FOLIC ACID
  10. IBUPROFEN. [Concomitant]
     Active Substance: IBUPROFEN
  11. CYCLOBENZAPRINE. [Concomitant]
     Active Substance: CYCLOBENZAPRINE
  12. RISEDRONATE SODIUM. [Concomitant]
     Active Substance: RISEDRONATE SODIUM
  13. TYLENOL [Concomitant]
     Active Substance: ACETAMINOPHEN
  14. ACTEMRA [Suspect]
     Active Substance: TOCILIZUMAB
     Indication: RHEUMATOID ARTHRITIS
     Route: 042
  15. PANTOPRAZOLE MAGNESIUM [Concomitant]
     Active Substance: PANTOPRAZOLE MAGNESIUM
  16. AMITRIPTYLINE [Concomitant]
     Active Substance: AMITRIPTYLINE
  17. CELEBREX [Concomitant]
     Active Substance: CELECOXIB
  18. LEUCOVORIN CALCIUM. [Concomitant]
     Active Substance: LEUCOVORIN CALCIUM
  19. SALBUTAMOL [Concomitant]
     Active Substance: ALBUTEROL
  20. ORENCIA [Suspect]
     Active Substance: ABATACEPT
     Indication: PRODUCT USED FOR UNKNOWN INDICATION
     Route: 065
  21. CHOLECALCIFEROL [Concomitant]
     Active Substance: CHOLECALCIFEROL
  22. TYLENOL EXTRA STRENGTH [Concomitant]
     Active Substance: ACETAMINOPHEN
  23. ROSUVASTATIN CALCIUM. [Concomitant]
     Active Substance: ROSUVASTATIN CALCIUM
  24. ZANTAC [Concomitant]
     Active Substance: RANITIDINE HYDROCHLORIDE

REACTIONS (12)
  - Dry eye [Unknown]
  - Psoriasis [Unknown]
  - Drug ineffective [Unknown]
  - Hiatus hernia [Unknown]
  - Large intestine polyp [Unknown]
  - Vitreous detachment [Unknown]
  - Helicobacter gastritis [Unknown]
  - Haemorrhoids [Unknown]
  - Mouth ulceration [Unknown]
  - Dry mouth [Unknown]
  - Haematochezia [Unknown]
  - Rash [Unknown]
